FAERS Safety Report 8504609-5 (Version None)
Quarter: 2012Q3

REPORT INFORMATION
  Report Type: 
  Country: None (occurrence: None)
  Receive Date: 20120711
  Receipt Date: 20120703
  Transmission Date: 20120928
  Serious: Yes (Hospitalization)
  Sender: FDA-Public Use
  Company Number: US-ROCHE-1084601

PATIENT
  Age: 61 Year
  Sex: Female
  Weight: 109.41 kg

DRUGS (1)
  1. XELODA [Suspect]
     Indication: BREAST CANCER METASTATIC
     Route: 048
     Dates: start: 20120619, end: 20120630

REACTIONS (2)
  - UNEVALUABLE EVENT [None]
  - BLOOD SODIUM DECREASED [None]
